FAERS Safety Report 25091175 (Version 1)
Quarter: 2025Q1

REPORT INFORMATION
  Report Type: Spontaneous
  Country: KR (occurrence: KR)
  Receive Date: 20250318
  Receipt Date: 20250318
  Transmission Date: 20250409
  Serious: Yes (Hospitalization)
  Sender: ELI LILLY AND COMPANY
  Company Number: KR-ELI_LILLY_AND_COMPANY-KR202503006912

PATIENT
  Sex: Male

DRUGS (1)
  1. CYRAMZA [Suspect]
     Active Substance: RAMUCIRUMAB
     Indication: Product used for unknown indication
     Route: 042
     Dates: start: 20241220

REACTIONS (3)
  - Dysphagia [Unknown]
  - Blood calcium increased [Unknown]
  - Inappropriate schedule of product administration [Unknown]
